FAERS Safety Report 4671270-X (Version None)
Quarter: 2005Q2

REPORT INFORMATION
  Report Type: 
  Country: None (occurrence: None)
  Receive Date: 20050523
  Receipt Date: 20050510
  Transmission Date: 20051028
  Serious: Yes (Hospitalization)
  Sender: FDA-Public Use
  Company Number: MEDI-0002096

PATIENT
  Age: 6 Month
  Sex: Male

DRUGS (5)
  1. SYNAGIS [Suspect]
     Indication: ANTIVIRAL PROPHYLAXIS
     Dosage: SEE IMAGE
     Route: 030
     Dates: start: 20040124, end: 20040225
  2. SYNAGIS [Suspect]
     Indication: ANTIVIRAL PROPHYLAXIS
     Dosage: SEE IMAGE
     Route: 030
     Dates: start: 20040124
  3. SYNAGIS [Suspect]
     Indication: ANTIVIRAL PROPHYLAXIS
     Dosage: SEE IMAGE
     Route: 030
     Dates: start: 20040324
  4. FERRIC PYROPHOSPHATE            (FERRIC PYROPHOSPHATE) [Concomitant]
  5. ALFACALCIDOL (ALFACALCIDOL) [Concomitant]

REACTIONS (5)
  - ASPIRATION [None]
  - ASTHMA [None]
  - ATELECTASIS [None]
  - PNEUMONIA [None]
  - VIRAL INFECTION [None]
